FAERS Safety Report 22222213 (Version 1)
Quarter: 2023Q2

REPORT INFORMATION
  Report Type: Spontaneous
  Country: RU (occurrence: None)
  Receive Date: 20230418
  Receipt Date: 20230418
  Transmission Date: 20230722
  Serious: Yes (Other)
  Sender: FDA-Public Use
  Company Number: RU-ROCHE-3328314

PATIENT
  Age: 51 Year
  Sex: Female

DRUGS (6)
  1. TRASTUZUMAB [Suspect]
     Active Substance: TRASTUZUMAB
     Indication: Breast cancer
     Dosage: FROM 08/DEC/2020 TO 11/DEC/2020 1 COURSE, FROM 20/JAN/2021-25/JAN/2021 2ND COURSE, FROM 11/FEB/2021-
     Route: 065
     Dates: start: 20201208, end: 20210422
  2. PERTUZUMAB [Suspect]
     Active Substance: PERTUZUMAB
     Indication: Breast cancer
     Dosage: FROM 08/DEC/2020 TO 11/DEC/2020 1 COURSE, FROM 20/JAN/2021-25/JAN/2021 2ND COURSE, FROM 11/FEB/2021-
     Route: 065
     Dates: start: 20201208, end: 20210422
  3. ADO-TRASTUZUMAB EMTANSINE [Suspect]
     Active Substance: ADO-TRASTUZUMAB EMTANSINE
     Indication: Breast cancer
     Dosage: FROM 21/JUN/2021 TO 04/AUG/2021 (1-3 COURSES OF ADJUVANT DRUG THERAPY TRASTUZUMAB-EMTANSINE WAS ADMI
     Route: 065
     Dates: start: 20210621, end: 20210804
  4. DOCETAXEL [Suspect]
     Active Substance: DOCETAXEL
     Indication: Breast cancer
     Dosage: FROM 08/DEC/2020 TO 11/DEC/2020 1 COURSE, FROM 20/JAN/2021-25/JAN/2021 2ND COURSE, FROM 11/FEB/2021-
     Route: 065
     Dates: start: 20201208, end: 20210422
  5. CARBOPLATIN [Suspect]
     Active Substance: CARBOPLATIN
     Indication: Breast cancer
     Dosage: FROM 08/DEC/2020 TO 11/DEC/2020 1 COURSE, FROM 20/JAN/2021-25/JAN/2021 2ND COURSE, FROM 11/FEB/2021-
     Route: 065
     Dates: start: 20201208, end: 20210422
  6. TAMOXIFEN [Concomitant]
     Active Substance: TAMOXIFEN
     Dosage: HORMONE THERAPY: TAMOXIFEN 20 MG PER DAY FOR UP TO 5 YEARS
     Route: 065

REACTIONS (2)
  - Hepatotoxicity [Unknown]
  - Anaemia [Unknown]
